FAERS Safety Report 11597409 (Version 1)
Quarter: 2015Q3

REPORT INFORMATION
  Report Type: Spontaneous
  Country: US (occurrence: US)
  Receive Date: 20150916
  Receipt Date: 20150916
  Transmission Date: 20151125
  Serious: No
  Sender: FDA-Public Use
  Company Number: US-ELI_LILLY_AND_COMPANY-US200801004242

PATIENT
  Age: 80 Year
  Sex: Female

DRUGS (2)
  1. FORTEO [Suspect]
     Active Substance: TERIPARATIDE
     Indication: OSTEOPOROSIS
     Dates: start: 20080114
  2. VAGIFEM [Concomitant]
     Active Substance: ESTRADIOL
     Dosage: 25 MG, UNK

REACTIONS (3)
  - Pruritus [Recovering/Resolving]
  - Cystitis [Unknown]
  - Rash [Recovering/Resolving]

NARRATIVE: CASE EVENT DATE: 200801
